FAERS Safety Report 5194267-2 (Version None)
Quarter: 2006Q4

REPORT INFORMATION
  Report Type: 
  Country: None (occurrence: None)
  Receive Date: 20061228
  Receipt Date: 20060906
  Transmission Date: 20070319
  Serious: Yes (Death, Other)
  Sender: FDA-Public Use
  Company Number: JP-PFIZER INC-2006108985

PATIENT
  Age: 39 Year
  Sex: Male
  Weight: 61 kg

DRUGS (1)
  1. VFEND [Suspect]
     Dosage: DAILY DOSE:360MG
     Route: 042

REACTIONS (2)
  - ACUTE MYELOID LEUKAEMIA [None]
  - LIVER FUNCTION TEST ABNORMAL [None]
